FAERS Safety Report 9475241 (Version 1)
Quarter: 2013Q3

REPORT INFORMATION
  Report Type: Spontaneous
  Country: US (occurrence: None)
  Receive Date: 20130822
  Receipt Date: 20130822
  Transmission Date: 20140515
  Serious: No
  Sender: FDA-Public Use
  Company Number: None

PATIENT
  Sex: Female
  Weight: 72.58 kg

DRUGS (1)
  1. AZITHROMYCIN [Suspect]
     Indication: CHLAMYDIAL INFECTION
     Dosage: 4 TABLETS AS 1 DOSE MOUTH
     Route: 048
     Dates: start: 20130805, end: 20130805

REACTIONS (3)
  - Malaise [None]
  - Diarrhoea [None]
  - Vomiting [None]
